FAERS Safety Report 4373505-X (Version None)
Quarter: 2004Q1

REPORT INFORMATION
  Report Type: 
  Country: None (occurrence: None)
  Receive Date: 20040305
  Receipt Date: 20040121
  Transmission Date: 20041129
  Serious: Yes (Other)
  Sender: FDA-Public Use
  Company Number: 2004UW01319

PATIENT
  Age: 82 Year
  Sex: Female

DRUGS (4)
  1. CRESTOR [Suspect]
     Dosage: 10 MG PO
     Route: 048
  2. ZANTAC [Concomitant]
  3. EVISTA [Concomitant]
  4. DIOVAN HCT [Concomitant]

REACTIONS (1)
  - NIGHTMARE [None]
